FAERS Safety Report 6034444-1 (Version None)
Quarter: 2009Q1

REPORT INFORMATION
  Report Type: 
  Country: None (occurrence: None)
  Receive Date: 20090108
  Receipt Date: 20081223
  Transmission Date: 20090719
  Serious: Yes (Death)
  Sender: FDA-Public Use
  Company Number: 000060

PATIENT
  Age: 54 Year
  Sex: Male

DRUGS (10)
  1. ALPRAZOLAM [Suspect]
     Dosage: ORAL
     Route: 048
  2. FLUOXETINE HCL [Suspect]
  3. VENLAFAXINE HCL [Suspect]
  4. TRAZODONE HCL [Suspect]
  5. GABAPENTIN [Suspect]
  6. METFORMIN HCL [Suspect]
  7. POTASSIUM CHLORIDE [Suspect]
  8. FUROSEMIDE [Suspect]
  9. GLIMEPIRIDE [Suspect]
  10. TURPENTINE OIL [Suspect]

REACTIONS (2)
  - COMPLETED SUICIDE [None]
  - INTENTIONAL DRUG MISUSE [None]
